FAERS Safety Report 13195917 (Version 1)
Quarter: 2017Q1

REPORT INFORMATION
  Report Type: Spontaneous
  Country: US (occurrence: US)
  Receive Date: 20170208
  Receipt Date: 20170208
  Transmission Date: 20170428
  Serious: No
  Sender: FDA-Public Use
  Company Number: US-BAYER-2017-021459

PATIENT
  Sex: Female
  Weight: 77 kg

DRUGS (4)
  1. PAIN STOPPER EXTRA [Suspect]
     Active Substance: ACETAMINOPHEN\ASPIRIN\CAFFEINE\SALICYLAMIDE
     Indication: SCIATICA
     Dosage: 2 DF, UNK
     Route: 048
  2. ALEVE PM [Suspect]
     Active Substance: DIPHENHYDRAMINE HYDROCHLORIDE\NAPROXEN SODIUM
     Indication: PAIN
     Dosage: 2 DF, UNK
     Route: 048
     Dates: start: 2009, end: 201608
  3. ALEVE [Suspect]
     Active Substance: NAPROXEN SODIUM
     Indication: SCIATICA
     Dosage: UNK
     Dates: start: 2009, end: 201608
  4. ONE A DAY WOMEN^S PETITES [Concomitant]
     Active Substance: MINERALS\VITAMINS
     Dosage: 2 DF, UNK
     Route: 048

REACTIONS (2)
  - Product use issue [Unknown]
  - Diarrhoea [Unknown]
